FAERS Safety Report 16595334 (Version 1)
Quarter: 2019Q3

REPORT INFORMATION
  Report Type: Spontaneous
  Country: US (occurrence: US)
  Receive Date: 20190718
  Receipt Date: 20190718
  Transmission Date: 20191004
  Serious: No
  Sender: FDA-Public Use
  Company Number: US-CELGENEUS-USA-20190702352

PATIENT
  Age: 66 Year
  Sex: Female

DRUGS (2)
  1. OTEZLA [Suspect]
     Active Substance: APREMILAST
     Indication: PSORIASIS
     Dosage: STARTER PACK
     Route: 048
     Dates: start: 20190315
  2. OTEZLA [Suspect]
     Active Substance: APREMILAST
     Indication: PSORIASIS
     Dosage: 60 MILLIGRAM
     Route: 048
     Dates: start: 20190516

REACTIONS (15)
  - Nasal congestion [Recovering/Resolving]
  - Upper-airway cough syndrome [Recovering/Resolving]
  - Productive cough [Not Recovered/Not Resolved]
  - Sneezing [Recovering/Resolving]
  - Sinus headache [Recovering/Resolving]
  - Fatigue [Unknown]
  - Respiratory tract congestion [Recovering/Resolving]
  - Product dose omission [Unknown]
  - Dysphonia [Recovering/Resolving]
  - Oropharyngeal pain [Recovering/Resolving]
  - Pain [Recovering/Resolving]
  - Diarrhoea [Unknown]
  - Rhinorrhoea [Recovering/Resolving]
  - Nasopharyngitis [Not Recovered/Not Resolved]
  - Expired product administered [Unknown]

NARRATIVE: CASE EVENT DATE: 2019
